FAERS Safety Report 5243057-0 (Version None)
Quarter: 2007Q1

REPORT INFORMATION
  Report Type: 
  Country: None (occurrence: None)
  Receive Date: 20070220
  Receipt Date: 20070220
  Transmission Date: 20070707
  Serious: Yes (Hospitalization, Disabling)
  Sender: FDA-Public Use
  Company Number: None

PATIENT
  Age: 43 Year
  Sex: Female
  Weight: 83.4619 kg

DRUGS (7)
  1. AVASTIN [Suspect]
     Indication: COLORECTAL CANCER METASTATIC
     Dosage: 800MG IV Q OTHER WEEK
     Route: 042
     Dates: start: 20040309
  2. DIOVAN ACT [Concomitant]
  3. TOPROL-XL [Concomitant]
  4. PROZAC [Concomitant]
  5. COUMADIN [Concomitant]
  6. PREVACID [Concomitant]
  7. CELEBREX [Concomitant]

REACTIONS (1)
  - INTESTINAL PERFORATION [None]
